FAERS Safety Report 4567503-0 (Version None)
Quarter: 2005Q1

REPORT INFORMATION
  Report Type: 
  Country: None (occurrence: None)
  Receive Date: 20050127
  Receipt Date: 20050118
  Transmission Date: 20050727
  Serious: Yes (Death)
  Sender: FDA-Public Use
  Company Number: 800133

PATIENT
  Age: 1 Month
  Sex: Female
  Weight: 2.21 kg

DRUGS (6)
  1. DIANEAL [Suspect]
     Indication: PERITONEAL DIALYSIS
     Dosage: 60 ML;Q4H; INTRAPERITONEAL
     Route: 033
     Dates: start: 20040511, end: 20040511
  2. SODIUM BICARBONATE [Concomitant]
  3. SODIUM CHLORIDE [Concomitant]
  4. GASMOTIN [Concomitant]
  5. HUMULIN R [Concomitant]
  6. BUMINATE [Concomitant]

REACTIONS (16)
  - BASE EXCESS DECREASED [None]
  - BLOOD PH DECREASED [None]
  - BRAIN OEDEMA [None]
  - CONDITION AGGRAVATED [None]
  - CONGENITAL PANCREATIC ANOMALY [None]
  - ENCEPHALITIS [None]
  - HYPERAMMONAEMIA [None]
  - HYPERGLYCAEMIA [None]
  - HYPERLACTACIDAEMIA [None]
  - HYPOGLYCAEMIC ENCEPHALOPATHY [None]
  - HYPOVOLAEMIA [None]
  - MENINGITIS [None]
  - MYELITIS [None]
  - PCO2 INCREASED [None]
  - RESPIRATORY DISORDER [None]
  - SKELETON DYSPLASIA [None]
